FAERS Safety Report 16427516 (Version 1)
Quarter: 2019Q2

REPORT INFORMATION
  Report Type: Spontaneous
  Country: US (occurrence: US)
  Receive Date: 20190613
  Receipt Date: 20190613
  Transmission Date: 20190711
  Serious: Yes (Hospitalization)
  Sender: FDA-Public Use
  Company Number: US-PFIZER INC-2019241856

PATIENT
  Age: 30 Year
  Sex: Female

DRUGS (4)
  1. MEPHOBARBITAL. [Suspect]
     Active Substance: MEPHOBARBITAL
     Indication: SEIZURE
     Dosage: 32 MG, 4X/DAY
  2. PHENYTOIN SODIUM. [Suspect]
     Active Substance: PHENYTOIN SODIUM
     Dosage: 100 MG, 3X/DAY
  3. PHENYTOIN SODIUM. [Suspect]
     Active Substance: PHENYTOIN SODIUM
     Indication: SEIZURE
     Dosage: 100 MG, 4X/DAY
  4. PHENYTOIN SODIUM. [Suspect]
     Active Substance: PHENYTOIN SODIUM
     Dosage: 100 MG, 2X/DAY

REACTIONS (3)
  - Substance-induced psychotic disorder [Recovered/Resolved]
  - Psychotic behaviour [Recovered/Resolved]
  - Toxicity to various agents [Recovered/Resolved]
